FAERS Safety Report 20826988 (Version 5)
Quarter: 2023Q1

REPORT INFORMATION
  Report Type: Spontaneous
  Country: CA (occurrence: CA)
  Receive Date: 20220513
  Receipt Date: 20230210
  Transmission Date: 20230417
  Serious: Yes (Other)
  Sender: FDA-Public Use
  Company Number: CA-PFIZER INC-2021454561

PATIENT
  Age: 72 Year
  Sex: Female
  Weight: 77 kg

DRUGS (20)
  1. RUXIENCE [Suspect]
     Active Substance: RITUXIMAB-PVVR
     Indication: Granulomatosis with polyangiitis
     Dosage: 1000 MG (ONE TIME DOSE)
     Route: 042
  2. RUXIENCE [Suspect]
     Active Substance: RITUXIMAB-PVVR
     Dosage: 1000 MG
     Route: 042
     Dates: start: 20210707, end: 20210717
  3. RUXIENCE [Suspect]
     Active Substance: RITUXIMAB-PVVR
     Dosage: 1000 MG, ONE TIME DOSE
     Route: 042
     Dates: start: 20210707, end: 20210707
  4. RUXIENCE [Suspect]
     Active Substance: RITUXIMAB-PVVR
     Dosage: 500 MG
     Route: 042
     Dates: start: 20220209, end: 20220209
  5. RUXIENCE [Suspect]
     Active Substance: RITUXIMAB-PVVR
     Dosage: 500 MG , EVERY 6 MONTHS
     Route: 042
     Dates: start: 20220809
  6. RUXIENCE [Suspect]
     Active Substance: RITUXIMAB-PVVR
     Dosage: 500 MG , EVERY 6 MONTHS
     Route: 042
     Dates: start: 20220809, end: 20220809
  7. RUXIENCE [Suspect]
     Active Substance: RITUXIMAB-PVVR
     Dosage: 1000 MG, 1 TIME DOSE
     Route: 042
     Dates: start: 20230207
  8. AMLODIPINE [Concomitant]
     Active Substance: AMLODIPINE BESYLATE
     Dosage: UNK
  9. AMLODIPINE [Concomitant]
     Active Substance: AMLODIPINE BESYLATE
     Dosage: 10 MG, 1X/DAY
     Route: 065
  10. BISOPROLOL [Concomitant]
     Active Substance: BISOPROLOL
     Dosage: UNK
  11. BISOPROLOL [Concomitant]
     Active Substance: BISOPROLOL
     Dosage: 7.5 MG, 1X/DAY
     Route: 065
  12. CANDESARTAN [Concomitant]
     Active Substance: CANDESARTAN
     Dosage: UNK
  13. CANDESARTAN [Concomitant]
     Active Substance: CANDESARTAN
     Dosage: 60 MG, 1X/DAY
     Route: 065
  14. PREDNISONE [Concomitant]
     Active Substance: PREDNISONE
     Dosage: UNK
  15. PREDNISONE [Concomitant]
     Active Substance: PREDNISONE
     Dosage: 5 MG, 1X/DAY
     Route: 065
     Dates: start: 202009
  16. SULFADIAZINE\TRIMETHOPRIM [Concomitant]
     Active Substance: SULFADIAZINE\TRIMETHOPRIM
     Dosage: UNK
  17. SULFADIAZINE\TRIMETHOPRIM [Concomitant]
     Active Substance: SULFADIAZINE\TRIMETHOPRIM
     Dosage: 1 DF, 800/160 MG
     Route: 065
  18. ACETAMINOPHEN [Concomitant]
     Active Substance: ACETAMINOPHEN
     Indication: Premedication
     Dosage: 650 MG
     Route: 048
     Dates: start: 20230207
  19. DIPHENHYDRAMINE [Concomitant]
     Active Substance: DIPHENHYDRAMINE
     Indication: Premedication
     Dosage: 50 MG
     Route: 048
     Dates: start: 20230207
  20. SOLU-MEDROL [Concomitant]
     Active Substance: METHYLPREDNISOLONE SODIUM SUCCINATE
     Indication: Premedication
     Dosage: 100 MG
     Route: 042
     Dates: start: 20230207

REACTIONS (13)
  - Pituitary tumour [Not Recovered/Not Resolved]
  - Cough [Not Recovered/Not Resolved]
  - Sinus disorder [Unknown]
  - Nasal congestion [Recovered/Resolved]
  - Ear discomfort [Unknown]
  - Condition aggravated [Unknown]
  - Neck pain [Not Recovered/Not Resolved]
  - Arthralgia [Not Recovered/Not Resolved]
  - Pyrexia [Recovered/Resolved]
  - COVID-19 [Unknown]
  - Vasculitis [Recovering/Resolving]
  - Blood pressure fluctuation [Unknown]
  - Off label use [Unknown]

NARRATIVE: CASE EVENT DATE: 20220101
